FAERS Safety Report 10853888 (Version 2)
Quarter: 2015Q1

REPORT INFORMATION
  Report Type: Spontaneous
  Country: US (occurrence: US)
  Receive Date: 20150223
  Receipt Date: 20150324
  Transmission Date: 20150721
  Serious: Yes (Other)
  Sender: FDA-Public Use
  Company Number: PHEH2015US003052

PATIENT
  Sex: Female

DRUGS (1)
  1. GLEEVEC [Suspect]
     Active Substance: IMATINIB MESYLATE
     Indication: GASTROINTESTINAL STROMAL TUMOUR
     Dosage: 400 MG, QD
     Route: 048

REACTIONS (15)
  - Rash [Unknown]
  - Oropharyngeal swelling [Unknown]
  - Erythema [Unknown]
  - Flushing [Unknown]
  - Urticaria [Unknown]
  - Oedema mouth [Unknown]
  - Eyelid oedema [Unknown]
  - Face oedema [Recovered/Resolved]
  - Eye oedema [Unknown]
  - Tongue oedema [Unknown]
  - Upper airway obstruction [Unknown]
  - Dyspnoea [Unknown]
  - Skin oedema [Unknown]
  - Allergic oedema [Unknown]
  - Anaphylactic reaction [Unknown]

NARRATIVE: CASE EVENT DATE: 201501
